FAERS Safety Report 6920326-7 (Version None)
Quarter: 2010Q3

REPORT INFORMATION
  Report Type: 
  Country: None (occurrence: None)
  Receive Date: 20100809
  Receipt Date: 20100726
  Transmission Date: 20110219
  Serious: Yes (Hospitalization, Other)
  Sender: FDA-Public Use
  Company Number: 230419K07USA

PATIENT
  Age: 46 Year
  Sex: Female
  Weight: 55 kg

DRUGS (3)
  1. REBIF [Suspect]
     Indication: MULTIPLE SCLEROSIS
     Dosage: 44 MCG, 3 IN 1 WK, SUBCUTANEOUS
     Route: 058
     Dates: start: 20050511, end: 20070101
  2. REBIF [Suspect]
     Indication: MULTIPLE SCLEROSIS
     Dosage: 44 MCG, 3 IN 1 WK, SUBCUTANEOUS
     Route: 058
     Dates: start: 20070215
  3. PITUITARY TUMOR MEDICATIONS (ALL OTHER THERAPEUTIC PRODUCTS) [Concomitant]

REACTIONS (8)
  - ANAEMIA [None]
  - CONDITION AGGRAVATED [None]
  - GRAND MAL CONVULSION [None]
  - PANCREATIC DISORDER [None]
  - PITUITARY TUMOUR RECURRENT [None]
  - RENAL FAILURE [None]
  - THYROID DISORDER [None]
  - VISUAL IMPAIRMENT [None]
